FAERS Safety Report 10515175 (Version 2)
Quarter: 2015Q1

REPORT INFORMATION
  Report Type: Report from Study
  Country: AU (occurrence: AU)
  Receive Date: 20141014
  Receipt Date: 20150319
  Transmission Date: 20150720
  Serious: No
  Sender: FDA-Public Use
  Company Number: AU-ABBVIE-14K-008-1293595-00

PATIENT
  Sex: Female

DRUGS (1)
  1. HUMIRA [Suspect]
     Active Substance: ADALIMUMAB
     Indication: CROHN^S DISEASE
     Route: 058
     Dates: start: 20140829

REACTIONS (6)
  - Impaired gastric emptying [Recovering/Resolving]
  - Food intolerance [Recovering/Resolving]
  - Drug ineffective [Recovered/Resolved]
  - Gastroenteritis [Unknown]
  - Fatigue [Recovering/Resolving]
  - Intestinal haemorrhage [Recovered/Resolved]

NARRATIVE: CASE EVENT DATE: 2014
